FAERS Safety Report 9341616 (Version 1)
Quarter: 2013Q2

REPORT INFORMATION
  Report Type: Spontaneous
  Country: US (occurrence: US)
  Receive Date: 20130611
  Receipt Date: 20130611
  Transmission Date: 20140414
  Serious: No
  Sender: FDA-Public Use
  Company Number: US-PFIZER INC-2013174324

PATIENT
  Age: 81 Year
  Sex: Female

DRUGS (4)
  1. TIKOSYN [Suspect]
     Indication: ARRHYTHMIA
     Dosage: 125 MG, EVERY 12 HOURS
  2. PRADAXA [Concomitant]
     Dosage: 150 MG, EVERY 12 HOURS
  3. DIOVAN HCT [Concomitant]
     Dosage: 160/12.5MG DAILY
  4. TOPROL XL [Concomitant]
     Dosage: 150 MG, EVERY 12 HOURS

REACTIONS (1)
  - Drug ineffective [Not Recovered/Not Resolved]
